FAERS Safety Report 16376681 (Version 1)
Quarter: 2019Q2

REPORT INFORMATION
  Report Type: Spontaneous
  Country: FR (occurrence: FR)
  Receive Date: 20190531
  Receipt Date: 20190531
  Transmission Date: 20190711
  Serious: Yes (Hospitalization)
  Sender: FDA-Public Use
  Company Number: FR-MYLANLABS-2019M1051671

PATIENT
  Age: 87 Year
  Sex: Female
  Weight: 55.9 kg

DRUGS (11)
  1. BISOCE [Suspect]
     Active Substance: BISOPROLOL
     Indication: HYPERTENSIVE HEART DISEASE
     Dosage: 1.25 MILLIGRAM
     Route: 048
  2. DOLIPRANE [Concomitant]
     Active Substance: ACETAMINOPHEN
  3. DIFFU K [Concomitant]
     Active Substance: POTASSIUM CHLORIDE
  4. BETAHISTINE HYDROCHLORIDE [Concomitant]
     Active Substance: BETAHISTINE HYDROCHLORIDE
  5. ESOMEPRAZOLE. [Concomitant]
     Active Substance: ESOMEPRAZOLE MAGNESIUM
  6. RAMIPRIL. [Suspect]
     Active Substance: RAMIPRIL
     Indication: HYPERTENSIVE HEART DISEASE
     Dosage: 10 MILLIGRAM
     Route: 048
  7. FUROSEMIDE. [Suspect]
     Active Substance: FUROSEMIDE
     Indication: HYPERTENSIVE HEART DISEASE
     Dosage: 80 MILLIGRAM, QD
     Route: 048
  8. EUPRESSYL                          /00631801/ [Suspect]
     Active Substance: URAPIDIL
     Dosage: UNK
  9. LERCANIDIPINE [Suspect]
     Active Substance: LERCANIDIPINE
     Indication: HYPERTENSIVE HEART DISEASE
     Dosage: 20 MILLIGRAM
     Route: 048
  10. EUPRESSYL                          /00631801/ [Suspect]
     Active Substance: URAPIDIL
     Indication: HYPERTENSIVE HEART DISEASE
     Dosage: 120 MILLIGRAM, QD
     Route: 048
  11. PREVISCAN                          /00261401/ [Concomitant]
     Active Substance: PENTOXIFYLLINE

REACTIONS (1)
  - Fall [Recovered/Resolved]

NARRATIVE: CASE EVENT DATE: 201812
